FAERS Safety Report 13885418 (Version 1)
Quarter: 2017Q3

REPORT INFORMATION
  Report Type: Report from Study
  Country: IE (occurrence: IE)
  Receive Date: 20170821
  Receipt Date: 20170821
  Transmission Date: 20171127
  Serious: Yes (Other)
  Sender: FDA-Public Use
  Company Number: IE-TAKEDA-2017MPI007031

PATIENT
  Age: 66 Year
  Sex: Male

DRUGS (16)
  1. AMLODIPINE BESILATE W/VALSARTAN [Concomitant]
     Active Substance: AMLODIPINE BESYLATE\VALSARTAN
     Dosage: 5 MG, QD
     Route: 050
  2. SILDENAFIL. [Concomitant]
     Active Substance: SILDENAFIL
     Dosage: 100 MG, UNK
     Route: 050
  3. DEXAMETHASONE. [Concomitant]
     Active Substance: DEXAMETHASONE
     Dosage: 40 MG, 1/WEEK
     Route: 050
  4. VELCADE [Suspect]
     Active Substance: BORTEZOMIB
     Dosage: 2.74 MG, UNK
     Route: 058
     Dates: start: 20170815
  5. RABEPRAZOLE [Concomitant]
     Active Substance: RABEPRAZOLE
     Dosage: 20 MG, QD
     Route: 050
  6. VELCADE [Suspect]
     Active Substance: BORTEZOMIB
     Indication: PLASMA CELL MYELOMA
     Dosage: 1.3 MG/M2, UNK
     Route: 058
     Dates: start: 20170627
  7. NOVORAPID [Concomitant]
     Active Substance: INSULIN ASPART
     Dosage: 25 UG, UNK
     Route: 050
  8. ELTROXIN [Concomitant]
     Active Substance: LEVOTHYROXINE
     Dosage: 100 UG, QD
     Route: 050
  9. SEPTRIN [Concomitant]
     Active Substance: SULFAMETHOXAZOLE\TRIMETHOPRIM
     Dosage: 960 MG, BID
     Route: 050
  10. NOVOMIX [Concomitant]
     Active Substance: INSULIN ASPART
     Dosage: UNK UNK, BID
     Route: 050
  11. GLUCOPHAGE [Concomitant]
     Active Substance: METFORMIN HYDROCHLORIDE
     Dosage: 1000 MG, BID
     Route: 050
  12. CAPRIN [Concomitant]
     Active Substance: ASPIRIN
     Dosage: 75 MG, QD
     Route: 050
  13. INSULIN [Concomitant]
     Active Substance: INSULIN NOS
     Indication: TYPE 2 DIABETES MELLITUS
     Dosage: UNK
     Route: 065
  14. CRESTOR [Concomitant]
     Active Substance: ROSUVASTATIN CALCIUM
     Dosage: 20 MG, QD
     Route: 050
  15. ELTROXIN [Concomitant]
     Active Substance: LEVOTHYROXINE
     Dosage: UNK UNK, QD
     Route: 050
  16. CYCLOPHOSPHAMIDE. [Concomitant]
     Active Substance: CYCLOPHOSPHAMIDE
     Dosage: 650 MG, 1/WEEK
     Route: 050

REACTIONS (1)
  - Diabetic foot [Not Recovered/Not Resolved]

NARRATIVE: CASE EVENT DATE: 20170802
